FAERS Safety Report 17771063 (Version 1)
Quarter: 2020Q2

REPORT INFORMATION
  Report Type: Report from Study
  Country: DO (occurrence: DO)
  Receive Date: 20200512
  Receipt Date: 20200512
  Transmission Date: 20200714
  Serious: Yes (Other)
  Sender: FDA-Public Use
  Company Number: NVSC2020DO128195

PATIENT
  Age: 62 Year
  Sex: Female

DRUGS (1)
  1. EXFORGE HCT [Suspect]
     Active Substance: AMLODIPINE BESYLATE\HYDROCHLOROTHIAZIDE\VALSARTAN
     Indication: PRODUCT USED FOR UNKNOWN INDICATION
     Dosage: 10/160/12.5 MG
     Route: 065

REACTIONS (4)
  - Diabetes mellitus [Unknown]
  - Hypertension [Unknown]
  - Disturbance in social behaviour [Unknown]
  - Deafness [Unknown]
